FAERS Safety Report 13090080 (Version 1)
Quarter: 2017Q1

REPORT INFORMATION
  Report Type: Spontaneous
  Country: US (occurrence: US)
  Receive Date: 20170105
  Receipt Date: 20170105
  Transmission Date: 20170428
  Serious: Yes (Hospitalization, Other)
  Sender: FDA-Public Use
  Company Number: US-GLAXOSMITHKLINE-US2017000822

PATIENT
  Age: 48 Year
  Sex: Female

DRUGS (9)
  1. GABAPENTIN. [Concomitant]
     Active Substance: GABAPENTIN
  2. FLEXERIL [Concomitant]
     Active Substance: CYCLOBENZAPRINE HYDROCHLORIDE
  3. VENTOLIN HFA [Suspect]
     Active Substance: ALBUTEROL SULFATE
     Indication: CHRONIC OBSTRUCTIVE PULMONARY DISEASE
     Dosage: 2 PUFF(S), QID
     Route: 055
     Dates: start: 201607
  4. OMEPRAZOLE. [Concomitant]
     Active Substance: OMEPRAZOLE
  5. RISPERDAL [Concomitant]
     Active Substance: RISPERIDONE
  6. VENTOLIN HFA [Suspect]
     Active Substance: ALBUTEROL SULFATE
     Indication: ASTHMA
  7. BACLOFEN. [Concomitant]
     Active Substance: BACLOFEN
  8. VENTOLIN HFA [Suspect]
     Active Substance: ALBUTEROL SULFATE
     Indication: EMPHYSEMA
  9. ALBUTEROL SULFATE. [Concomitant]
     Active Substance: ALBUTEROL SULFATE

REACTIONS (4)
  - Gallbladder operation [Recovering/Resolving]
  - Cholelithiasis [Recovered/Resolved]
  - Product cleaning inadequate [Recovered/Resolved]
  - Device use error [Recovered/Resolved]

NARRATIVE: CASE EVENT DATE: 20170103
